FAERS Safety Report 11385525 (Version 2)
Quarter: 2015Q3

REPORT INFORMATION
  Report Type: Spontaneous
  Country: AU (occurrence: AU)
  Receive Date: 20150816
  Receipt Date: 20150909
  Transmission Date: 20151125
  Serious: Yes (Other)
  Sender: FDA-Public Use
  Company Number: AU-AMGEN-AUSSP2015082666

PATIENT
  Age: 31 Year
  Sex: Female

DRUGS (1)
  1. ENBREL [Suspect]
     Active Substance: ETANERCEPT
     Indication: PSORIATIC ARTHROPATHY
     Dosage: 25 MG, 2X/WEEK
     Route: 065
     Dates: start: 20140219

REACTIONS (5)
  - Complication of pregnancy [Recovered/Resolved]
  - Sacroiliitis [Unknown]
  - Arthralgia [Unknown]
  - Endometritis [Recovered/Resolved]
  - Postpartum haemorrhage [Recovered/Resolved]
